FAERS Safety Report 6474569-X (Version None)
Quarter: 2009Q4

REPORT INFORMATION
  Report Type: 
  Country: None (occurrence: None)
  Receive Date: 20091123
  Receipt Date: 20090831
  Transmission Date: 20100525
  Serious: No
  Sender: FDA-Public Use
  Company Number: 8051217

PATIENT
  Age: 48 Year
  Sex: Male

DRUGS (2)
  1. CIMZIA [Suspect]
     Indication: CROHN'S DISEASE
     Dosage: 200 MG /M SC
     Route: 058
     Dates: start: 20081210
  2. MERCAPTOPURINE [Concomitant]

REACTIONS (1)
  - INTESTINAL OBSTRUCTION [None]
